FAERS Safety Report 9454084 (Version 1)
Quarter: 2013Q3

REPORT INFORMATION
  Report Type: Spontaneous
  Country: US (occurrence: None)
  Receive Date: 20130809
  Receipt Date: 20130809
  Transmission Date: 20140515
  Serious: No
  Sender: FDA-Public Use
  Company Number: None

PATIENT
  Age: 68 Year
  Sex: Female
  Weight: 99.79 kg

DRUGS (2)
  1. VICTOZA [Suspect]
     Indication: TYPE 2 DIABETES MELLITUS
     Dosage: LOWEST DOSE ON PEN THREE TIMES DAILY GIVEN INTO/UNDER THE SKIN
  2. VICTOZA [Suspect]
     Indication: DIABETES MELLITUS INADEQUATE CONTROL
     Dosage: LOWEST DOSE ON PEN THREE TIMES DAILY GIVEN INTO/UNDER THE SKIN

REACTIONS (8)
  - Dizziness [None]
  - Nausea [None]
  - Headache [None]
  - Diarrhoea [None]
  - Abdominal pain upper [None]
  - Rash pruritic [None]
  - Lip swelling [None]
  - Dysphagia [None]
